FAERS Safety Report 19206168 (Version 1)
Quarter: 2021Q2

REPORT INFORMATION
  Report Type: Spontaneous
  Country: US (occurrence: US)
  Receive Date: 20210503
  Receipt Date: 20210503
  Transmission Date: 20210717
  Serious: No
  Sender: FDA-Public Use
  Company Number: US-SA-2021SA143886

PATIENT
  Age: 73 Year
  Sex: Male

DRUGS (3)
  1. DUPIXENT [Suspect]
     Active Substance: DUPILUMAB
     Indication: SKIN DISORDER
     Dosage: UNK
  2. DUPIXENT [Suspect]
     Active Substance: DUPILUMAB
     Indication: FOLLICULITIS
     Dosage: 200 MG, QOW
     Dates: end: 202103
  3. DUPIXENT [Suspect]
     Active Substance: DUPILUMAB
     Indication: FUNGAL INFECTION

REACTIONS (3)
  - Condition aggravated [Not Recovered/Not Resolved]
  - Pustule [Not Recovered/Not Resolved]
  - Pruritus [Not Recovered/Not Resolved]

NARRATIVE: CASE EVENT DATE: 2021
